FAERS Safety Report 5344461-2 (Version None)
Quarter: 2007Q2

REPORT INFORMATION
  Report Type: 
  Country: None (occurrence: None)
  Receive Date: 20070604
  Receipt Date: 20070523
  Transmission Date: 20071010
  Serious: Yes (Death)
  Sender: FDA-Public Use
  Company Number: JP-PFIZER INC-2007042497

PATIENT
  Age: 60 Year
  Sex: Male

DRUGS (2)
  1. TRIAZOLAM [Suspect]
  2. ETHANOL [Suspect]

REACTIONS (1)
  - DEATH [None]
